FAERS Safety Report 8764230 (Version 1)
Quarter: 2012Q4

REPORT INFORMATION
  Report Type: 
  Country: GB (occurrence: GB)
  Receive Date: 20120831
  Receipt Date: 20120831
  Transmission Date: 20130627
  Serious: Yes (Other)
  Sender: FDA-Public Use
  Company Number: GB-RANBAXY-2012R1-59443

PATIENT
  Age: 63 Year
  Sex: Male

DRUGS (3)
  1. AMLODIPINE [Suspect]
     Indication: BLOOD PRESSURE
     Dosage: UNK
     Route: 065
  2. LOSARTAN [Suspect]
     Indication: BLOOD PRESSURE
     Dosage: UNK
     Route: 048
  3. AMLODIPINE BESILATE (ISTIN) [Concomitant]
     Indication: PRODUCT USED FOR UNKNOWN INDICATION
     Dosage: UNK
     Route: 065

REACTIONS (7)
  - Dyspnoea [Recovered/Resolved]
  - Chest pain [Recovered/Resolved]
  - Chest discomfort [Recovered/Resolved]
  - Cough [Recovered/Resolved]
  - Tracheal disorder [Recovered/Resolved]
  - Mouth ulceration [Recovered/Resolved]
  - Product substitution issue [None]
